FAERS Safety Report 19575917 (Version 1)
Quarter: 2021Q3

REPORT INFORMATION
  Report Type: Spontaneous
  Country: US (occurrence: US)
  Receive Date: 20210716
  Receipt Date: 20210716
  Transmission Date: 20211014
  Serious: No
  Sender: FDA-Public Use
  Company Number: None

PATIENT

DRUGS (1)
  1. METHOHEXITAL 500MG/VIAL FOR INJ [Suspect]
     Active Substance: METHOHEXITAL
     Indication: ELECTROCONVULSIVE THERAPY
     Dosage: 100MG THE { DOSE
     Dates: start: 20210617, end: 20210715

REACTIONS (1)
  - Drug ineffective [None]
